FAERS Safety Report 6013972-9 (Version None)
Quarter: 2008Q4

REPORT INFORMATION
  Report Type: 
  Country: None (occurrence: None)
  Receive Date: 20081219
  Receipt Date: 20081209
  Transmission Date: 20090506
  Serious: Yes (Other)
  Sender: FDA-Public Use
  Company Number: BR-PFIZER INC-2008155554

PATIENT

DRUGS (4)
  1. FRONTAL XR [Suspect]
     Indication: INSOMNIA
     Dosage: 0.5 MG, 2X/DAY
     Route: 048
  2. ZOLPIDEM [Concomitant]
     Dosage: UNK
     Dates: start: 20050101
  3. EUTHYROX [Concomitant]
     Dosage: UNK
  4. INDAPAMIDE [Concomitant]
     Dosage: UNK

REACTIONS (5)
  - ANXIETY [None]
  - DRUG INEFFECTIVE [None]
  - INSOMNIA [None]
  - THYROID DISORDER [None]
  - WEIGHT INCREASED [None]
